FAERS Safety Report 19375357 (Version 1)
Quarter: 2021Q2

REPORT INFORMATION
  Report Type: Spontaneous
  Country: GB (occurrence: GB)
  Receive Date: 20210604
  Receipt Date: 20210604
  Transmission Date: 20210717
  Serious: Yes (Life-Threatening, Other)
  Sender: FDA-Public Use
  Company Number: GB-PFIZER INC-2021599796

PATIENT
  Age: 85 Year
  Sex: Female
  Weight: 51 kg

DRUGS (8)
  1. ASPIRIN (E.C.) [Suspect]
     Active Substance: ASPIRIN
     Indication: ACUTE MYOCARDIAL INFARCTION
     Dosage: 300 MG
     Route: 048
     Dates: start: 20210524, end: 20210524
  2. NITROGLYCERIN. [Suspect]
     Active Substance: NITROGLYCERIN
     Indication: ACUTE MYOCARDIAL INFARCTION
     Dosage: 800 UG
     Route: 060
     Dates: start: 20210524, end: 20210524
  3. ADCAL D3 [Concomitant]
     Active Substance: CALCIUM CARBONATE\CHOLECALCIFEROL
     Indication: ILL-DEFINED DISORDER
  4. ALENDRONIC ACID [Concomitant]
     Active Substance: ALENDRONIC ACID
     Indication: ILL-DEFINED DISORDER
  5. MORPHINE SULFATE. [Suspect]
     Active Substance: MORPHINE SULFATE
     Indication: ACUTE MYOCARDIAL INFARCTION
     Dosage: 10 MG
     Route: 042
     Dates: start: 20210524, end: 20210524
  6. CLOPIDOGREL SULFATE [Suspect]
     Active Substance: CLOPIDOGREL BISULFATE
     Indication: ACUTE MYOCARDIAL INFARCTION
     Dosage: 75 MG
     Route: 048
     Dates: start: 20210524, end: 20210524
  7. TENECTEPLASE [Suspect]
     Active Substance: TENECTEPLASE
     Indication: ACUTE MYOCARDIAL INFARCTION
     Dosage: 3 ML
     Route: 042
     Dates: start: 20210524, end: 20210524
  8. ENOXAPARIN SODIUM. [Suspect]
     Active Substance: ENOXAPARIN SODIUM
     Indication: ACUTE MYOCARDIAL INFARCTION
     Dosage: 40 MG
     Route: 058
     Dates: start: 20210524, end: 20210524

REACTIONS (5)
  - Head injury [Unknown]
  - Coma scale abnormal [Unknown]
  - Haemorrhage intracranial [Unknown]
  - Brain stem haemorrhage [Unknown]
  - Headache [Unknown]

NARRATIVE: CASE EVENT DATE: 20210524
